FAERS Safety Report 15335890 (Version 1)
Quarter: 2018Q4

REPORT INFORMATION
  Report Type: Spontaneous
  Country: DK (occurrence: DK)
  Receive Date: 20180830
  Receipt Date: 20180830
  Transmission Date: 20190204
  Serious: Yes (Hospitalization)
  Sender: FDA-Public Use
  Company Number: PHHY2018DK082236

PATIENT
  Age: 77 Year
  Sex: Male

DRUGS (8)
  1. RIVAROXABAN [Concomitant]
     Active Substance: RIVAROXABAN
     Indication: THROMBOSIS PROPHYLAXIS
     Dosage: 20 MG, QD
     Route: 048
     Dates: start: 20180120
  2. RAMIPRIL. [Concomitant]
     Active Substance: RAMIPRIL
     Indication: CARDIAC DISORDER
     Dosage: 10 MG, QD
     Route: 048
     Dates: start: 20110509
  3. METOPROLOL. [Concomitant]
     Active Substance: METOPROLOL
     Indication: HYPERTENSION
     Dosage: 50 MG, QD
     Route: 048
     Dates: start: 20160222
  4. LOCOID [Concomitant]
     Active Substance: HYDROCORTISONE BUTYRATE
     Indication: ECZEMA
     Dosage: 2 DF, QD
     Route: 003
     Dates: start: 20180220
  5. AZATHIOPRINE. [Concomitant]
     Active Substance: AZATHIOPRINE
     Indication: INFLAMMATORY BOWEL DISEASE
     Dosage: 2,5 TABLETTER F?R SENGETID SKIFTEVIS 2 OG 3 TABLETTER HVER ANDEN AFTEN
     Route: 048
  6. CORDAN (AMIODARONE HYDROCHLORIDE) [Suspect]
     Active Substance: AMIODARONE HYDROCHLORIDE
     Indication: CARDIAC DISORDER
     Dosage: 200 MG. DOSIS: FRA 02MAR2018 TIL 13MAR2018: 400 MG 2 GANGE DAGLIG, S? 200 MG DAGLIG
     Route: 048
     Dates: start: 20180302, end: 20180409
  7. SIMVASTATIN. [Concomitant]
     Active Substance: SIMVASTATIN
     Indication: HYPERCHOLESTEROLAEMIA
     Dosage: 40 MG, QD
     Route: 048
  8. SALMETEROL [Concomitant]
     Active Substance: SALMETEROL
     Indication: LUNG DISORDER
     Dosage: 100 UG, QD
     Route: 055
     Dates: start: 20180220

REACTIONS (1)
  - Depression [Unknown]

NARRATIVE: CASE EVENT DATE: 201803
